FAERS Safety Report 13003383 (Version 1)
Quarter: 2016Q4

REPORT INFORMATION
  Report Type: Spontaneous
  Country: CH (occurrence: AT)
  Receive Date: 20161206
  Receipt Date: 20161206
  Transmission Date: 20170207
  Serious: Yes (Life-Threatening)
  Sender: FDA-Public Use
  Company Number: CH-LPDUSPRD-20161083

PATIENT
  Age: 26 Year
  Sex: Female

DRUGS (1)
  1. FERINJECT [Suspect]
     Active Substance: FERRIC CARBOXYMALTOSE
     Dosage: 1000 MG
     Route: 041
     Dates: start: 2015

REACTIONS (9)
  - General physical health deterioration [Recovering/Resolving]
  - Oedema [Recovering/Resolving]
  - Bone pain [Recovering/Resolving]
  - Refeeding syndrome [Unknown]
  - Hypoalbuminaemia [Recovering/Resolving]
  - Nausea [Recovering/Resolving]
  - Muscular weakness [Recovering/Resolving]
  - Hypophosphataemia [Unknown]
  - Vomiting [Recovering/Resolving]
